FAERS Safety Report 7026320-2 (Version None)
Quarter: 2010Q4

REPORT INFORMATION
  Report Type: 
  Country: None (occurrence: None)
  Receive Date: 20101004
  Receipt Date: 20100922
  Transmission Date: 20110411
  Serious: Yes (Death, Other)
  Sender: FDA-Public Use
  Company Number: JP-PFIZER INC-2010120008

PATIENT
  Age: 68 Year
  Sex: Male

DRUGS (3)
  1. CABASER [Suspect]
     Indication: PARKINSONISM
     Dosage: 0.25 MG, UNK
     Route: 048
     Dates: start: 20060214
  2. CABASER [Suspect]
     Dosage: 2 MG, UNK
     Route: 048
  3. MENESIT [Concomitant]
     Dosage: UNK

REACTIONS (2)
  - CARDIAC VALVE DISEASE [None]
  - PNEUMONIA [None]
